FAERS Safety Report 10631206 (Version 1)
Quarter: 2014Q4

REPORT INFORMATION
  Report Type: Spontaneous
  Country: US (occurrence: US)
  Receive Date: 20141205
  Receipt Date: 20141205
  Transmission Date: 20150529
  Serious: No
  Sender: FDA-Public Use
  Company Number: US-BRISTOL-MYERS SQUIBB COMPANY-21564612

PATIENT
  Sex: Male

DRUGS (4)
  1. METFORMIN HCL [Suspect]
     Active Substance: METFORMIN HYDROCHLORIDE
  2. NOVOLOG [Suspect]
     Active Substance: INSULIN ASPART
  3. LEVEMIR [Suspect]
     Active Substance: INSULIN DETEMIR
  4. GLYBURIDE. [Suspect]
     Active Substance: GLYBURIDE

REACTIONS (4)
  - Nervousness [Unknown]
  - Blood glucose increased [Unknown]
  - Hypoglycaemia [Unknown]
  - Tremor [Unknown]
